FAERS Safety Report 7437190-2 (Version None)
Quarter: 2011Q2

REPORT INFORMATION
  Report Type: 
  Country: None (occurrence: None)
  Receive Date: 20110426
  Receipt Date: 20081201
  Transmission Date: 20111010
  Serious: Yes (Death, Hospitalization, Other)
  Sender: FDA-Public Use
  Company Number: US-BAYER-200840154NA

PATIENT
  Age: 70 Year
  Sex: Female
  Weight: 65.76 kg

DRUGS (15)
  1. PLATELETS [Concomitant]
     Dosage: UNK
     Route: 042
     Dates: start: 20051209
  2. VASOPRESSIN [VASOPRESSIN] [Concomitant]
     Dosage: UNK
     Route: 042
     Dates: start: 20051209
  3. TRASYLOL [Suspect]
     Indication: AORTIC VALVE REPLACEMENT
     Dosage: 200CC, FOLLOWED BY 50CC PER HOUR
     Route: 042
     Dates: start: 20051209, end: 20051209
  4. EPINEPHRINE [Concomitant]
     Dosage: UNK
     Dates: start: 20051212
  5. TOBRAMYCIN [Concomitant]
     Dosage: 80MG
     Route: 042
     Dates: start: 20051209
  6. RED BLOOD CELLS [Concomitant]
     Dosage: 2 UNITS
     Dates: start: 20051209
  7. MILRINONE [Concomitant]
     Dosage: UNK
     Dates: start: 20051209
  8. ZINACEF [Concomitant]
     Dosage: 1.5GM
     Route: 042
     Dates: start: 20051209
  9. INSULIN [INSULIN] [Concomitant]
     Dosage: DRIP
     Route: 042
     Dates: start: 20051209
  10. ZINACEF [Concomitant]
     Dosage: 1.5GM ONE TIME
     Route: 042
     Dates: start: 20051208
  11. NITROGLYCERIN [Concomitant]
     Dosage: DRIP
     Route: 042
     Dates: start: 20051209
  12. PLATELETS [Concomitant]
     Dosage: UNK
     Dates: start: 20051212
  13. HEPARIN [Concomitant]
     Dosage: 25,000 UNITS
     Route: 042
     Dates: start: 20051209
  14. MAXZIDE [Concomitant]
     Dosage: 1/2 TABLET DAILY
     Route: 048
     Dates: start: 20051208
  15. LOPRESSOR [Concomitant]
     Dosage: UNK25MG DAILY
     Route: 048
     Dates: start: 20051208

REACTIONS (13)
  - EMOTIONAL DISTRESS [None]
  - FEAR [None]
  - MULTI-ORGAN FAILURE [None]
  - RENAL INJURY [None]
  - DEATH [None]
  - RENAL FAILURE [None]
  - PAIN [None]
  - RENAL IMPAIRMENT [None]
  - INJURY [None]
  - STRESS [None]
  - ANXIETY [None]
  - UNEVALUABLE EVENT [None]
  - ANHEDONIA [None]
